FAERS Safety Report 6936838-6 (Version None)
Quarter: 2010Q3

REPORT INFORMATION
  Report Type: 
  Country: None (occurrence: None)
  Receive Date: 20100823
  Receipt Date: 20100813
  Transmission Date: 20110219
  Serious: Yes (Other)
  Sender: FDA-Public Use
  Company Number: US-RB-007125-10

PATIENT
  Age: 41 Year
  Sex: Male

DRUGS (3)
  1. SUBOXONE [Suspect]
     Indication: DRUG DEPENDENCE
     Route: 060
     Dates: start: 20091101
  2. PRISTIQ [Suspect]
     Indication: DEPRESSION
     Dosage: UNKNOWN DOSING DETAILS
     Route: 048
     Dates: start: 20091201, end: 20100406
  3. PROZAC [Concomitant]
     Indication: DEPRESSION
     Dosage: UNKNOWN DOSING DETAILS
     Route: 065
     Dates: end: 20091201

REACTIONS (9)
  - ANXIETY [None]
  - BLOOD GLUCOSE INCREASED [None]
  - DEPRESSION [None]
  - DRUG DEPENDENCE [None]
  - HYPERTENSION [None]
  - PAIN [None]
  - RESTLESSNESS [None]
  - SUICIDAL IDEATION [None]
  - THINKING ABNORMAL [None]
